FAERS Safety Report 21023178 (Version 3)
Quarter: 2023Q1

REPORT INFORMATION
  Report Type: Report from Study
  Country: US (occurrence: US)
  Receive Date: 20220629
  Receipt Date: 20230119
  Transmission Date: 20230418
  Serious: Yes (Hospitalization, Other)
  Sender: FDA-Public Use
  Company Number: US-JAZZ-2022-US-021488

PATIENT
  Age: 10 Year
  Sex: Male
  Weight: 47 kg

DRUGS (8)
  1. EPIDIOLEX [Suspect]
     Active Substance: CANNABIDIOL
     Indication: Lennox-Gastaut syndrome
     Dosage: 4 MILLILITER
     Route: 048
     Dates: start: 202202
  2. EPIDIOLEX [Suspect]
     Active Substance: CANNABIDIOL
     Dosage: 2 MILLILITER, BID
     Route: 048
     Dates: start: 202201
  3. SENNA LEAF [Concomitant]
     Active Substance: SENNA LEAF
     Indication: Product used for unknown indication
     Dosage: UNK
  4. SENNA LEAF [Concomitant]
     Active Substance: SENNA LEAF
     Dosage: UNK
  5. FELBATOL [Concomitant]
     Active Substance: FELBAMATE
     Indication: Product used for unknown indication
     Dosage: UNK
  6. FELBATOL [Concomitant]
     Active Substance: FELBAMATE
     Dosage: UNK
  7. CLOBAZAM [Concomitant]
     Active Substance: CLOBAZAM
     Indication: Product used for unknown indication
     Dosage: UNK
  8. CLOBAZAM [Concomitant]
     Active Substance: CLOBAZAM
     Dosage: UNK

REACTIONS (2)
  - Hospitalisation [Unknown]
  - Seizure [Not Recovered/Not Resolved]

NARRATIVE: CASE EVENT DATE: 20220621
